FAERS Safety Report 22047555 (Version 1)
Quarter: 2023Q1

REPORT INFORMATION
  Report Type: Other
  Country: FR (occurrence: FR)
  Receive Date: 20230301
  Receipt Date: 20230301
  Transmission Date: 20230418
  Serious: Yes (Hospitalization)
  Sender: FDA-Public Use
  Company Number: None

PATIENT

DRUGS (4)
  1. BISOPROLOL [Suspect]
     Active Substance: BISOPROLOL
     Indication: Atrial fibrillation
     Dosage: 1.25 MILLIGRAM, QD
     Route: 048
     Dates: start: 20221221
  2. ASPIRIN DL-LYSINE [Suspect]
     Active Substance: ASPIRIN DL-LYSINE
     Indication: Atrial fibrillation
     Dosage: 3000 MILLIGRAM, QD
     Route: 048
     Dates: start: 20221215, end: 20230103
  3. FLECAINIDE [Suspect]
     Active Substance: FLECAINIDE
     Indication: Arrhythmia supraventricular
     Dosage: 100 MILLIGRAM, QD
     Route: 048
     Dates: start: 20221219, end: 20230103
  4. ELIQUIS [Suspect]
     Active Substance: APIXABAN
     Indication: Atrial fibrillation
     Dosage: 100 MILLIGRAM, QD
     Route: 048
     Dates: start: 20221219, end: 20230103

REACTIONS (3)
  - Dysarthria [Recovered/Resolved]
  - Hepatocellular injury [Recovered/Resolved]
  - Hypoaesthesia [Recovered/Resolved]

NARRATIVE: CASE EVENT DATE: 20230103
